FAERS Safety Report 5767622-7 (Version None)
Quarter: 2008Q2

REPORT INFORMATION
  Report Type: 
  Country: None (occurrence: None)
  Receive Date: 20080611
  Receipt Date: 20080611
  Transmission Date: 20081010
  Serious: Yes (Other)
  Sender: FDA-Public Use
  Company Number: None

PATIENT
  Age: 71 Year
  Sex: Female
  Weight: 68.0396 kg

DRUGS (2)
  1. OMNISCAN [Suspect]
     Indication: DEMENTIA ALZHEIMER'S TYPE
     Dates: start: 20070719, end: 20070719
  2. OMNISCAN [Suspect]
     Indication: NUCLEAR MAGNETIC RESONANCE IMAGING
     Dates: start: 20070719, end: 20070719

REACTIONS (11)
  - ARTHRALGIA [None]
  - BACK PAIN [None]
  - DYSURIA [None]
  - ERYTHEMA [None]
  - HEADACHE [None]
  - MYALGIA [None]
  - NEPHROGENIC SYSTEMIC FIBROSIS [None]
  - PAIN IN EXTREMITY [None]
  - RASH [None]
  - SKIN DISCOLOURATION [None]
  - THROMBOSIS [None]
